FAERS Safety Report 5907503-9 (Version None)
Quarter: 2008Q4

REPORT INFORMATION
  Report Type: 
  Country: None (occurrence: None)
  Receive Date: 20081003
  Receipt Date: 20080924
  Transmission Date: 20090506
  Serious: Yes (Other)
  Sender: FDA-Public Use
  Company Number: FR-ABBOTT-08P-056-0447714-00

PATIENT
  Sex: Male
  Weight: 70 kg

DRUGS (1)
  1. LIPANTHYL [Suspect]
     Indication: HYPERCHOLESTEROLAEMIA
     Route: 048
     Dates: start: 20050101

REACTIONS (2)
  - DERMATOSIS [None]
  - LUNG DISORDER [None]
